FAERS Safety Report 9405766 (Version 1)
Quarter: 2013Q3

REPORT INFORMATION
  Report Type: Spontaneous
  Country: US (occurrence: US)
  Receive Date: 20130717
  Receipt Date: 20130717
  Transmission Date: 20140515
  Serious: No
  Sender: FDA-Public Use
  Company Number: US-009507513-1307USA005160

PATIENT
  Sex: Female

DRUGS (23)
  1. TEMODAR [Suspect]
     Indication: NEOPLASM MALIGNANT
     Dosage: 100 MG 5 DAYS A MONTH/THEN OFF 3 WEEKS, THEN 5 DAYS A MONTH BACK
     Route: 048
  2. ASTAXANTHIN [Concomitant]
  3. SELENIUM (UNSPECIFIED) [Concomitant]
  4. SILYMARIN [Concomitant]
  5. UBIQUINOL [Concomitant]
  6. OMEGA-3 MARINE TRIGLYCERIDES [Concomitant]
  7. GINGER [Concomitant]
  8. MULTI TABS B COMPLEX [Concomitant]
  9. LYCOPENE [Concomitant]
  10. RESVERATROL [Concomitant]
  11. QUERCETIN [Concomitant]
  12. FLAXSEED [Concomitant]
  13. MAGNESIUM (UNSPECIFIED) [Concomitant]
  14. DRENATROPHIN PMG [Concomitant]
  15. STANDARD PROCESS FERROFOOD [Concomitant]
  16. FOLIC ACID [Concomitant]
  17. STANDARD PROCESS LIVAPLEX [Concomitant]
  18. ZYPINE [Concomitant]
  19. STANDARD PROCESS ZYMEX [Concomitant]
  20. OVEX B [Concomitant]
  21. CATS CLAW [Concomitant]
  22. CILANTRO [Concomitant]
  23. CALCIUM LACTATE [Concomitant]

REACTIONS (1)
  - Fatigue [Unknown]
